FAERS Safety Report 5808578-8 (Version None)
Quarter: 2008Q3

REPORT INFORMATION
  Report Type: 
  Country: None (occurrence: None)
  Receive Date: 20080714
  Receipt Date: 20080707
  Transmission Date: 20090109
  Serious: Yes (Hospitalization, Other)
  Sender: FDA-Public Use
  Company Number: US-AMGEN-US279607

PATIENT
  Sex: Female
  Weight: 78.5 kg

DRUGS (5)
  1. ARANESP [Suspect]
     Indication: ANAEMIA OF MALIGNANT DISEASE
     Route: 058
     Dates: start: 20080108, end: 20080305
  2. TOPROL-XL [Concomitant]
     Route: 065
  3. ZYRTEC [Concomitant]
     Route: 065
  4. TAXOTERE [Concomitant]
     Route: 065
     Dates: start: 20080131, end: 20080312
  5. RADIATION THERAPY [Concomitant]
     Route: 065
     Dates: start: 20080301

REACTIONS (1)
  - BONE MARROW FAILURE [None]
